FAERS Safety Report 25840224 (Version 3)
Quarter: 2025Q4

REPORT INFORMATION
  Report Type: Spontaneous
  Country: US (occurrence: US)
  Receive Date: 20250924
  Receipt Date: 20251020
  Transmission Date: 20260117
  Serious: Yes (Other)
  Sender: ALEXION PHARMACEUTICALS
  Company Number: US-AstraZeneca-CH-00952312A

PATIENT
  Sex: Male
  Weight: 101.6 kg

DRUGS (5)
  1. ULTOMIRIS [Suspect]
     Active Substance: RAVULIZUMAB-CWVZ
     Indication: Myasthenia gravis
     Dosage: 3000 MILLIGRAM, SINGLE
     Dates: start: 20250829, end: 20250829
  2. ACETAMINOPHEN [Concomitant]
     Active Substance: ACETAMINOPHEN
     Dosage: 500 MILLIGRAM
     Route: 065
  3. DIPHENHYDRAMINE [Concomitant]
     Active Substance: DIPHENHYDRAMINE
     Dosage: 25 MILLIGRAM
     Route: 065
  4. METHYLPREDNISOLONE SODIUM SUCCINATE [Concomitant]
     Active Substance: METHYLPREDNISOLONE SODIUM SUCCINATE
     Dosage: 25 MILLIGRAM
     Route: 065
  5. SODIUM CHLORIDE [Concomitant]
     Active Substance: SODIUM CHLORIDE
     Dosage: 100 MILLILITER
     Route: 065

REACTIONS (8)
  - Choking [Unknown]
  - Cardiac pacemaker insertion [Unknown]
  - Arthralgia [Unknown]
  - Headache [Unknown]
  - Tremor [Unknown]
  - Memory impairment [Unknown]
  - Mobility decreased [Unknown]
  - Walking aid user [Unknown]
